FAERS Safety Report 5407877-1 (Version None)
Quarter: 2007Q3

REPORT INFORMATION
  Report Type: 
  Country: None (occurrence: None)
  Receive Date: 20070803
  Receipt Date: 20070723
  Transmission Date: 20080115
  Serious: Yes (Hospitalization)
  Sender: FDA-Public Use
  Company Number: S07-USA-01882-01

PATIENT
  Age: 51 Year
  Sex: Male
  Weight: 80.2867 kg

DRUGS (9)
  1. LEXAPRO [Suspect]
     Indication: POST-TRAUMATIC STRESS DISORDER
     Dosage: 20 MG BID PO
     Route: 048
     Dates: end: 20050804
  2. LEXAPRO [Suspect]
     Indication: POST-TRAUMATIC STRESS DISORDER
     Dosage: 10 M G QD PO
     Route: 048
     Dates: start: 20030625, end: 20030101
  3. LEXAPRO (ESCITALOPRAMO) [Suspect]
     Indication: POST-TRAUMATIC STRESS DISORDER
     Dosage: 20 MG QD PO
     Route: 048
     Dates: start: 20030101
  4. ZOCOR [Suspect]
     Indication: BLOOD CHOLESTEROL INCREASED
     Dosage: 40 MG QD
     Dates: end: 20050804
  5. ZOCOR [Suspect]
     Indication: BLOOD CHOLESTEROL INCREASED
     Dosage: 40 MG QD
  6. COREG [Concomitant]
  7. XANAX [Concomitant]
  8. BUSPAR [Concomitant]
  9. SEROQUEL [Concomitant]

REACTIONS (36)
  - ALANINE AMINOTRANSFERASE INCREASED [None]
  - AMNESIA [None]
  - ANION GAP INCREASED [None]
  - ASPARTATE AMINOTRANSFERASE INCREASED [None]
  - ASTHENIA [None]
  - BASE EXCESS DECREASED [None]
  - BLOOD BICARBONATE DECREASED [None]
  - BLOOD CHLORIDE DECREASED [None]
  - BLOOD CREATININE INCREASED [None]
  - BLOOD GLUCOSE INCREASED [None]
  - BLOOD OSMOLARITY DECREASED [None]
  - BLOOD PRESSURE SYSTOLIC INCREASED [None]
  - BLOOD THYROID STIMULATING HORMONE DECREASED [None]
  - BODY TEMPERATURE DECREASED [None]
  - CARBON DIOXIDE DECREASED [None]
  - COMA [None]
  - CONFUSIONAL STATE [None]
  - CONVULSION [None]
  - DIZZINESS [None]
  - FALL [None]
  - FEELING ABNORMAL [None]
  - GLIOSIS [None]
  - HYPONATRAEMIA [None]
  - HYPOXIA [None]
  - LOSS OF CONSCIOUSNESS [None]
  - NIGHTMARE [None]
  - PANIC ATTACK [None]
  - PCO2 DECREASED [None]
  - POSTICTAL STATE [None]
  - ROAD TRAFFIC ACCIDENT [None]
  - SENSATION OF HEAVINESS [None]
  - SPEECH DISORDER [None]
  - SYNCOPE [None]
  - UNEVALUABLE EVENT [None]
  - UNRESPONSIVE TO STIMULI [None]
  - WEIGHT DECREASED [None]
